FAERS Safety Report 7940764-3 (Version None)
Quarter: 2011Q4

REPORT INFORMATION
  Report Type: 
  Country: None (occurrence: None)
  Receive Date: 20111128
  Receipt Date: 20111121
  Transmission Date: 20120403
  Serious: Yes (Hospitalization, Other)
  Sender: FDA-Public Use
  Company Number: DE-PFIZER INC-049-0073-990003

PATIENT
  Age: 19 Month
  Sex: Male
  Weight: 13 kg

DRUGS (34)
  1. ALDACTONE [Suspect]
     Dosage: UNK
     Dates: start: 19961204
  2. METHOTREXATE SODIUM [Suspect]
     Dosage: UNK
     Dates: start: 19961127, end: 19961129
  3. BACTRIM [Suspect]
     Dosage: UNK
     Dates: start: 19961129
  4. DOPAMINE HYDROCHLORIDE [Suspect]
     Dosage: UNK
     Dates: start: 19961210
  5. ETOPOSIDE [Suspect]
     Dosage: UNK
     Dates: start: 19961122, end: 19961122
  6. CEFTAZIDIME SODIUM [Suspect]
     Dosage: UNK
     Dates: start: 19961122, end: 19961130
  7. MUCOSOLVAN [Suspect]
     Dosage: UNK
     Dates: start: 19961211
  8. ZANTAC [Suspect]
     Dosage: UNK
     Dates: end: 19961211
  9. NEUPOGEN [Suspect]
     Indication: BONE MARROW TRANSPLANT
     Dosage: UNK
     Route: 042
     Dates: start: 19961125
  10. FENTANYL [Suspect]
     Dosage: UNK
     Dates: start: 19961209
  11. HYDROMEDIN [Suspect]
     Dosage: UNK
     Dates: start: 19961212
  12. MULTIVITAMIN ADDITIVE [Suspect]
     Dosage: UNK
     Dates: start: 19961126
  13. SULFADIAZINE [Suspect]
     Dosage: UNK
     Dates: start: 19961116, end: 19961127
  14. PHENYTOIN [Suspect]
     Dosage: UNK
     Dates: start: 19961114, end: 19961124
  15. ACETYLCYSTEINE [Suspect]
     Dosage: UNK
     Dates: start: 19961130
  16. POLYGAM S/D [Suspect]
     Dosage: UNK
     Dates: start: 19961127, end: 19961210
  17. MICRONEFRIN [Suspect]
     Dosage: UNK
     Dates: start: 19961206
  18. ACETAMINOPHEN [Suspect]
     Dosage: UNK
     Dates: start: 19961120, end: 19961126
  19. NOREPINEPHRINE BITARTRATE [Suspect]
     Dosage: UNK
     Dates: start: 19961210
  20. MORPHINE HYDROCHLORIDE [Suspect]
     Dosage: UNK
     Dates: start: 19961130
  21. ALPROSTADIL [Suspect]
     Dosage: UNK
     Dates: start: 19961201
  22. ZIENAM [Suspect]
     Dosage: UNK
     Dates: start: 19961201
  23. PHENOBARBITAL TAB [Suspect]
     Dosage: UNK
     Dates: start: 19961209
  24. CLINDAMYCIN HCL [Suspect]
     Dosage: UNK
     Dates: start: 19961203
  25. ZOVIRAX [Suspect]
     Dosage: UNK
     Dates: start: 19961127
  26. AMBISOME [Suspect]
     Dosage: 40MG DAILY
     Dates: start: 19961124
  27. MIDAZOLAM HCL [Suspect]
     Dosage: UNK
     Dates: start: 19961209
  28. PANCURONIUM BROMIDE [Suspect]
     Dosage: UNK
     Dates: start: 19961213, end: 19961213
  29. TOBRAMYCIN [Suspect]
     Dosage: UNK
     Dates: start: 19961124
  30. MULTIVITAMIN ADDITIVE [Suspect]
     Dosage: UNK
     Dates: start: 19961127
  31. DIFLUCAN [Suspect]
     Dosage: UNK
     Dates: start: 19961117, end: 19961125
  32. LASIX [Suspect]
     Dosage: UNK
     Dates: start: 19961124
  33. NOVALGIN [Suspect]
     Dosage: UNK
     Dates: start: 19961120, end: 19961126
  34. METHYLPREDNISOLONE [Suspect]
     Dosage: UNK
     Dates: start: 19961124

REACTIONS (4)
  - OBSTRUCTIVE AIRWAYS DISORDER [None]
  - ANGIOEDEMA [None]
  - ASCITES [None]
  - STEVENS-JOHNSON SYNDROME [None]
